FAERS Safety Report 18297193 (Version 1)
Quarter: 2020Q3

REPORT INFORMATION
  Report Type: Spontaneous
  Country: CO (occurrence: CO)
  Receive Date: 20200922
  Receipt Date: 20200922
  Transmission Date: 20201103
  Serious: Yes (Other)
  Sender: FDA-Public Use
  Company Number: CO-BAYER-2020-170882

PATIENT
  Age: 32 Year
  Sex: Female

DRUGS (1)
  1. GADOBUTROL. [Suspect]
     Active Substance: GADOBUTROL
     Dosage: 84 ML, ONCE

REACTIONS (1)
  - Arthralgia [Recovered/Resolved]
